FAERS Safety Report 14547445 (Version 1)
Quarter: 2018Q1

REPORT INFORMATION
  Report Type: Spontaneous
  Country: US (occurrence: US)
  Receive Date: 20180219
  Receipt Date: 20180219
  Transmission Date: 20180509
  Serious: No
  Sender: FDA-Public Use
  Company Number: US-IPSEN BIOPHARMACEUTICALS, INC.-2017-01175

PATIENT
  Age: 50 Year
  Sex: Female

DRUGS (7)
  1. DYSPORT [Suspect]
     Active Substance: ABOBOTULINUMTOXINA
     Indication: OFF LABEL USE
     Dosage: 156 IU
     Route: 061
     Dates: start: 20170110, end: 20170110
  2. DYSPORT [Suspect]
     Active Substance: ABOBOTULINUMTOXINA
     Indication: SKIN WRINKLING
  3. DYSPORT [Suspect]
     Active Substance: ABOBOTULINUMTOXINA
     Indication: SKIN WRINKLING
     Dosage: 156 IU
     Route: 065
     Dates: start: 20161227, end: 20161227
  4. ESTROGEN [Concomitant]
     Active Substance: ESTROGENS
  5. PROGESTERONE. [Concomitant]
     Active Substance: PROGESTERONE
  6. DYSPORT [Suspect]
     Active Substance: ABOBOTULINUMTOXINA
     Indication: SKIN WRINKLING
  7. TESTOSTERONE. [Concomitant]
     Active Substance: TESTOSTERONE

REACTIONS (6)
  - Incorrect route of drug administration [Unknown]
  - Wrong technique in product usage process [Unknown]
  - Drug ineffective [Unknown]
  - Product preparation error [Unknown]
  - Off label use [Unknown]
  - Inappropriate schedule of drug administration [Unknown]
